FAERS Safety Report 10223000 (Version 3)
Quarter: 2014Q3

REPORT INFORMATION
  Report Type: Report from Study
  Country: DE (occurrence: DE)
  Receive Date: 20140607
  Receipt Date: 20140806
  Transmission Date: 20150326
  Serious: Yes (Hospitalization)
  Sender: FDA-Public Use
  Company Number: PHHY2014DE068723

PATIENT
  Age: 84 Year
  Sex: Female

DRUGS (19)
  1. AMN107 [Suspect]
     Active Substance: NILOTINIB
     Dosage: 300 MG, DAILY
     Dates: start: 20120327, end: 20120417
  2. ATACAND [Concomitant]
     Active Substance: CANDESARTAN CILEXETIL
     Indication: HYPERTENSION
     Dosage: 16 MG, ONCE/SINGLE
     Dates: end: 20120406
  3. VIGANTOLETTEN [Concomitant]
     Active Substance: CHOLECALCIFEROL
     Indication: OSTEOPOROSIS
     Dosage: 1000 IU, UNK
  4. ALENDRONATE [Concomitant]
     Active Substance: ALENDRONATE SODIUM
     Indication: OSTEOPOROSIS
     Dosage: 70 MG, QW
     Dates: start: 20131204
  5. AMITRIPTYLIN [Concomitant]
     Active Substance: AMITRIPTYLINE
     Indication: OSTEOPOROSIS
     Dosage: 5 DRP, ONCE/SINGLE
     Dates: end: 20120411
  6. TOREM [Concomitant]
     Active Substance: TORSEMIDE
     Indication: HYPERTENSION
     Dosage: 5 MG, ONCE/SINGLE
  7. SYREA [Concomitant]
     Active Substance: HYDROXYUREA
     Indication: CHRONIC MYELOID LEUKAEMIA
     Dosage: 500 MG, UNK
     Dates: start: 20120302, end: 20120720
  8. AMN107 [Suspect]
     Active Substance: NILOTINIB
     Dosage: 300 MG, DAILY
     Dates: start: 20120427, end: 20120504
  9. XARELTO [Concomitant]
     Active Substance: RIVAROXABAN
     Indication: THROMBOSIS PROPHYLAXIS
     Dosage: 15 MG, UNK
     Dates: start: 20121204
  10. ATACAND [Concomitant]
     Active Substance: CANDESARTAN CILEXETIL
     Dosage: 8 MG, UNK
     Dates: start: 20131204
  11. OXYCODON [Concomitant]
     Active Substance: OXYCODONE
     Indication: OSTEOPOROSIS
     Dosage: 20 MG, UNK
     Dates: start: 20121002
  12. OXYGESIC AKUT [Concomitant]
     Indication: OSTEOPOROSIS
     Dosage: 5 MG, PRN
  13. NOVALGIN                                /SCH/ [Concomitant]
     Indication: OSTEOPOROSIS
     Dosage: 1000 MG, UNK
  14. KALINOR                            /00279301/ [Concomitant]
     Dosage: UNK
     Dates: end: 20131015
  15. TARGIN [Concomitant]
     Active Substance: NALOXONE HYDROCHLORIDE\OXYCODONE HYDROCHLORIDE
     Indication: CONSTIPATION PROPHYLAXIS
     Dosage: 2.5 MG, UNK
     Dates: start: 20131204
  16. AMN107 [Suspect]
     Active Substance: NILOTINIB
     Dosage: 600 MG, DAILY
     Dates: start: 20120505
  17. PANTOZOL [Concomitant]
     Active Substance: PANTOPRAZOLE SODIUM
     Indication: PROPHYLAXIS
     Dosage: 20 MG, UNK
     Dates: start: 20131204
  18. BIFITERAL [Concomitant]
     Active Substance: LACTULOSE
     Indication: CONSTIPATION PROPHYLAXIS
     Dosage: 10 G, QW
     Dates: start: 20121204
  19. L-THYROXIN [Concomitant]
     Active Substance: LEVOTHYROXINE SODIUM
     Indication: HYPOTHYROIDISM
     Dosage: 25 UG, UNK
     Dates: start: 20131204

REACTIONS (4)
  - Renal failure acute [Recovered/Resolved]
  - Hypothyroidism [Unknown]
  - Gastric disorder [Unknown]
  - Dehydration [Recovered/Resolved]

NARRATIVE: CASE EVENT DATE: 20131121
